FAERS Safety Report 25084037 (Version 1)
Quarter: 2025Q1

REPORT INFORMATION
  Report Type: Spontaneous
  Country: US (occurrence: None)
  Receive Date: 20250315
  Receipt Date: 20250315
  Transmission Date: 20250409
  Serious: Yes (Death, Hospitalization)
  Sender: FDA-CTU
  Company Number: None

PATIENT
  Age: 65 Year
  Sex: Female

DRUGS (1)
  1. AMBRISENTAN [Suspect]
     Active Substance: AMBRISENTAN
     Indication: Pulmonary arterial hypertension
     Dosage: 10MG QD ORAL ?
     Route: 048
     Dates: start: 20140203, end: 20250124

REACTIONS (4)
  - Abdominal pain [None]
  - Small intestinal resection [None]
  - Hypoxia [None]
  - General physical health deterioration [None]

NARRATIVE: CASE EVENT DATE: 20241229
